FAERS Safety Report 12171072 (Version 1)
Quarter: 2016Q1

REPORT INFORMATION
  Report Type: Spontaneous
  Country: US (occurrence: None)
  Receive Date: 20160310
  Receipt Date: 20160310
  Transmission Date: 20160526
  Serious: Yes (Other)
  Sender: FDA-Public Use
  Company Number: None

PATIENT
  Age: 53 Year
  Sex: Female

DRUGS (1)
  1. METHOTREXATE [Suspect]
     Active Substance: METHOTREXATE

REACTIONS (5)
  - Sleep disorder [None]
  - White blood cell count decreased [None]
  - Headache [None]
  - Nausea [None]
  - Arthralgia [None]

NARRATIVE: CASE EVENT DATE: 20160308
